FAERS Safety Report 18088318 (Version 1)
Quarter: 2020Q3

REPORT INFORMATION
  Report Type: Report from Study
  Country: KR (occurrence: KR)
  Receive Date: 20200729
  Receipt Date: 20200729
  Transmission Date: 20201103
  Serious: Yes (Hospitalization)
  Sender: FDA-Public Use
  Company Number: KR-JNJFOC-20200728519

PATIENT
  Age: 81 Year
  Sex: Male
  Weight: 59.5 kg

DRUGS (9)
  1. PERINDOPRIL [Concomitant]
     Active Substance: PERINDOPRIL
     Dosage: 0.25 DF
     Route: 048
     Dates: start: 20200115
  2. ESOMEZOLE [Concomitant]
     Dosage: 1 DF
     Dates: start: 20200422
  3. APIXABAN [Concomitant]
     Active Substance: APIXABAN
     Dosage: 2 DF
     Route: 048
     Dates: start: 20200717
  4. XARELTO [Suspect]
     Active Substance: RIVAROXABAN
     Indication: THROMBOSIS PROPHYLAXIS
  5. ESOMEPRAZOLE. [Concomitant]
     Active Substance: ESOMEPRAZOLE MAGNESIUM
     Dosage: 1 DF
     Route: 048
     Dates: start: 20200115
  6. XARELTO [Suspect]
     Active Substance: RIVAROXABAN
     Indication: ATRIAL FIBRILLATION
  7. DILATREND [Concomitant]
     Active Substance: CARVEDILOL
     Dosage: 1 DF
     Route: 048
     Dates: start: 20200115
  8. XARELTO [Suspect]
     Active Substance: RIVAROXABAN
     Indication: CEREBROVASCULAR ACCIDENT PROPHYLAXIS
     Dosage: 15 MG, QD
     Route: 048
     Dates: start: 20200115, end: 20200715
  9. RYTMONORM [Concomitant]
     Active Substance: PROPAFENONE
     Dosage: 2 DF
     Route: 048
     Dates: start: 20200117

REACTIONS (1)
  - Pulmonary oedema [Not Recovered/Not Resolved]

NARRATIVE: CASE EVENT DATE: 20200713
